FAERS Safety Report 22247363 (Version 1)
Quarter: 2023Q2

REPORT INFORMATION
  Report Type: Report from Study
  Country: US (occurrence: US)
  Receive Date: 20230425
  Receipt Date: 20230425
  Transmission Date: 20230721
  Serious: Yes (Hospitalization)
  Sender: FDA-Public Use
  Company Number: US-KOREA IPSEN Pharma-2022-21711

PATIENT
  Age: 62 Year
  Sex: Male

DRUGS (1)
  1. SOMATULINE DEPOT [Suspect]
     Active Substance: LANREOTIDE ACETATE
     Indication: Carcinoid tumour of the small bowel
     Dosage: 120MG/0.58MG
     Route: 058
     Dates: start: 202008

REACTIONS (9)
  - Neoplasm [Recovered/Resolved]
  - Gastrointestinal injury [Recovered/Resolved]
  - COVID-19 [Recovered/Resolved]
  - Thoracic cavity drainage [Recovered/Resolved]
  - Loss of personal independence in daily activities [Recovering/Resolving]
  - Weight decreased [Recovered/Resolved]
  - Blood pressure measurement [Recovered/Resolved]
  - Nasopharyngitis [Not Recovered/Not Resolved]
  - Product dose omission issue [Unknown]

NARRATIVE: CASE EVENT DATE: 20200101
